FAERS Safety Report 5535816-1 (Version None)
Quarter: 2007Q4

REPORT INFORMATION
  Report Type: 
  Country: None (occurrence: None)
  Receive Date: 20071206
  Receipt Date: 20071204
  Transmission Date: 20080405
  Serious: Yes (Other)
  Sender: FDA-Public Use
  Company Number: B0359445A

PATIENT
  Sex: Female

DRUGS (2)
  1. SEROXAT [Suspect]
     Indication: DEPRESSION
     Route: 065
     Dates: end: 20040301
  2. ZIMOVANE [Concomitant]
     Route: 065

REACTIONS (6)
  - ABNORMAL DREAMS [None]
  - AGGRESSION [None]
  - DRUG WITHDRAWAL SYNDROME [None]
  - POLYDIPSIA [None]
  - SLEEP DISORDER [None]
  - SUICIDAL BEHAVIOUR [None]
